FAERS Safety Report 15547159 (Version 9)
Quarter: 2019Q2

REPORT INFORMATION
  Report Type: Report from Study
  Country: JP (occurrence: JP)
  Receive Date: 20181024
  Receipt Date: 20190425
  Transmission Date: 20190711
  Serious: Yes (Hospitalization, Other)
  Sender: FDA-Public Use
  Company Number: PHJP2018JP017793

PATIENT
  Age: 84 Year
  Sex: Male
  Weight: 55.8 kg

DRUGS (21)
  1. NICORANDIL [Concomitant]
     Active Substance: NICORANDIL
     Indication: MYOCARDIAL INFARCTION
     Dosage: 5 MG, BID
     Route: 048
     Dates: start: 20121116, end: 20190227
  2. FEBURIC [Concomitant]
     Active Substance: FEBUXOSTAT
     Dosage: 10 MG, QD
     Route: 048
     Dates: start: 20190303, end: 20190303
  3. AZOSEMIDE [Concomitant]
     Active Substance: AZOSEMIDE
     Indication: CARDIAC FAILURE
     Dosage: 60 MG, QD
     Route: 048
     Dates: start: 20150724, end: 20190226
  4. DIOVAN [Suspect]
     Active Substance: VALSARTAN
     Indication: CARDIAC FAILURE
     Dosage: 160 MG, BID
     Route: 048
     Dates: start: 20160916, end: 20190226
  5. ACETYLSALICYLIC ACID [Concomitant]
     Active Substance: ASPIRIN
     Indication: MYOCARDIAL INFARCTION
     Dosage: 100 MG, QD
     Route: 048
     Dates: start: 20180529, end: 20190220
  6. LOXOPROFEN NA [Concomitant]
     Active Substance: LOXOPROFEN SODIUM
     Indication: ARTHRITIS
     Dosage: 100 MG, PRN, AT THE TIME OF PAIN
     Route: 061
     Dates: start: 20161111, end: 20190221
  7. SODIUM BICARBONATE. [Concomitant]
     Active Substance: SODIUM BICARBONATE
     Dosage: 1 G, TID
     Route: 048
     Dates: start: 20190303, end: 20190303
  8. PARIET [Concomitant]
     Active Substance: RABEPRAZOLE SODIUM
     Indication: GASTRITIS PROPHYLAXIS
     Dosage: 5 MG, QD
     Route: 048
     Dates: start: 20150911, end: 20190226
  9. CARVEDILOL. [Concomitant]
     Active Substance: CARVEDILOL
     Dosage: 2.5 MG, BID
     Route: 048
     Dates: start: 20190303, end: 20190303
  10. AZOSEMIDE [Concomitant]
     Active Substance: AZOSEMIDE
     Dosage: 60 MG, QD
     Route: 048
     Dates: start: 20190303, end: 20190303
  11. SHAKUYAKUKANZOTO [Concomitant]
     Active Substance: HERBALS
     Indication: SEIZURE PROPHYLAXIS
     Dosage: 2.5 G, TID
     Route: 048
     Dates: start: 20180427, end: 20190221
  12. DIOVAN [Suspect]
     Active Substance: VALSARTAN
     Dosage: 2 DF, BID
     Route: 048
     Dates: start: 20190315, end: 20190317
  13. ROSUVASTATIN. [Concomitant]
     Active Substance: ROSUVASTATIN
     Indication: DYSLIPIDAEMIA
     Dosage: 5 MG, QD
     Route: 048
     Dates: start: 20150515, end: 20190226
  14. NICORANDIL [Concomitant]
     Active Substance: NICORANDIL
     Dosage: 5 MG, BID
     Route: 048
     Dates: start: 20190303, end: 20190303
  15. SODIUM BICARBONATE. [Concomitant]
     Active Substance: SODIUM BICARBONATE
     Dosage: 1 G, TID
     Route: 048
     Dates: start: 20190208, end: 20190226
  16. ROSUVASTATIN. [Concomitant]
     Active Substance: ROSUVASTATIN
     Dosage: 5 MG, QD
     Route: 048
     Dates: start: 20190303, end: 20190303
  17. CARVEDILOL. [Concomitant]
     Active Substance: CARVEDILOL
     Indication: CARDIAC FAILURE
     Dosage: 2.5 MG, BID
     Route: 048
     Dates: start: 20150724, end: 20190227
  18. FEBURIC [Concomitant]
     Active Substance: FEBUXOSTAT
     Indication: HYPERURICAEMIA
     Dosage: 50 MG, QD
     Route: 048
     Dates: start: 20180202, end: 20190226
  19. PARIET [Concomitant]
     Active Substance: RABEPRAZOLE SODIUM
     Dosage: 10 MG, QD
     Route: 048
     Dates: start: 20190303, end: 20190303
  20. CILOSTAZOL. [Concomitant]
     Active Substance: CILOSTAZOL
     Indication: MYOCARDIAL INFARCTION
     Dosage: 50 MG, BID
     Route: 048
     Dates: start: 20180529
  21. SODIUM BICARBONATE. [Concomitant]
     Active Substance: SODIUM BICARBONATE
     Indication: ACIDOSIS
     Dosage: 1 G, TID
     Route: 048
     Dates: start: 20180831, end: 20190207

REACTIONS (2)
  - Colon cancer [Recovering/Resolving]
  - Suture rupture [Recovered/Resolved]

NARRATIVE: CASE EVENT DATE: 20181010
